FAERS Safety Report 7183069-3 (Version None)
Quarter: 2010Q4

REPORT INFORMATION
  Report Type: 
  Country: None (occurrence: None)
  Receive Date: 20101222
  Receipt Date: 20100319
  Transmission Date: 20110411
  Serious: No
  Sender: FDA-Public Use
  Company Number: A0851171A

PATIENT
  Age: 64 Year
  Sex: Female

DRUGS (2)
  1. PROPAFENONE HYDROCHLORIDE [Suspect]
     Indication: ARRHYTHMIA
     Dosage: 225MG THREE TIMES PER DAY
     Route: 048
     Dates: start: 20090101, end: 20090101
  2. MULTIPLE MEDICATIONS [Concomitant]

REACTIONS (2)
  - ARRHYTHMIA [None]
  - DRUG DISPENSING ERROR [None]
